FAERS Safety Report 9478503 (Version 1)
Quarter: 2013Q3

REPORT INFORMATION
  Report Type: Report from Study
  Country: CA (occurrence: CA)
  Receive Date: 20130827
  Receipt Date: 20130827
  Transmission Date: 20140515
  Serious: Yes (Hospitalization)
  Sender: FDA-Public Use
  Company Number: CA-JNJFOC-20130808894

PATIENT
  Age: 61 Year
  Sex: Female
  Weight: 89.8 kg

DRUGS (7)
  1. REMICADE [Suspect]
     Indication: CROHN^S DISEASE
     Route: 042
     Dates: start: 20110516
  2. IMURAN [Concomitant]
     Route: 065
  3. AMLODIPINE [Concomitant]
     Route: 065
  4. ZOPLICONE [Concomitant]
     Route: 065
  5. PANTOPRAZOLE [Concomitant]
     Route: 065
  6. NAPROXEN [Concomitant]
     Route: 065
  7. TYLENOL 3 [Concomitant]
     Route: 065

REACTIONS (1)
  - Knee arthroplasty [Recovered/Resolved]
